FAERS Safety Report 4639577-X (Version None)
Quarter: 2005Q2

REPORT INFORMATION
  Report Type: 
  Country: None (occurrence: None)
  Receive Date: 20050328
  Receipt Date: 20050207
  Transmission Date: 20051028
  Serious: No
  Sender: FDA-Public Use
  Company Number: USA050290431

PATIENT
  Age: 39 Year
  Sex: Female

DRUGS (1)
  1. STRATTERA [Suspect]
     Dosage: 80 MG/D
     Dates: start: 20050101, end: 20050203

REACTIONS (6)
  - CHILLS [None]
  - FEELING ABNORMAL [None]
  - INSOMNIA [None]
  - PARAESTHESIA [None]
  - RHINORRHOEA [None]
  - THINKING ABNORMAL [None]
